FAERS Safety Report 5360832-2 (Version None)
Quarter: 2007Q2

REPORT INFORMATION
  Report Type: 
  Country: None (occurrence: None)
  Receive Date: 20070618
  Receipt Date: 20070607
  Transmission Date: 20071010
  Serious: Yes (Life-Threatening, Hospitalization)
  Sender: FDA-Public Use
  Company Number: DE-SHR-DE-2005-024533

PATIENT
  Age: 74 Year
  Sex: Male
  Weight: 77 kg

DRUGS (7)
  1. CAMPATH [Suspect]
     Indication: CHRONIC LYMPHOCYTIC LEUKAEMIA
     Dosage: 10 MG, UNK
     Route: 058
     Dates: start: 20051031, end: 20051121
  2. COTRIM DS [Concomitant]
     Dosage: 1920 MG, 2X/WEEK
  3. PEGFILGRASTIM [Suspect]
     Indication: PROPHYLAXIS
     Route: 058
     Dates: start: 20051116
  4. FAMVIR                                  /NET/ [Concomitant]
     Dosage: 250 MG, 2X/DAY
  5. MERONEM [Concomitant]
  6. DIFLUCAN [Concomitant]
     Dosage: 100 MG, 1X/DAY
  7. PANTOZOL [Concomitant]
     Dosage: 40 MG, 1X/DAY

REACTIONS (1)
  - SUPRAVENTRICULAR TACHYCARDIA [None]
